FAERS Safety Report 7680787-5 (Version None)
Quarter: 2011Q3

REPORT INFORMATION
  Report Type: 
  Country: None (occurrence: None)
  Receive Date: 20110812
  Receipt Date: 20110808
  Transmission Date: 20111222
  Serious: Yes (Death)
  Sender: FDA-Public Use
  Company Number: FR-MERCK-1108FRA00054

PATIENT

DRUGS (2)
  1. EMEND [Suspect]
     Route: 048
  2. DOCETAXEL [Suspect]
     Indication: CHEMOTHERAPY
     Route: 042

REACTIONS (3)
  - DEATH [None]
  - DRUG INTERACTION [None]
  - DYSPEPSIA [None]
